FAERS Safety Report 7148028-5 (Version None)
Quarter: 2010Q4

REPORT INFORMATION
  Report Type: 
  Country: None (occurrence: None)
  Receive Date: 20101209
  Receipt Date: 20101201
  Transmission Date: 20110411
  Serious: Yes (Other)
  Sender: FDA-Public Use
  Company Number: KR-JNJFOC-20101107597

PATIENT
  Age: 74 Year
  Sex: Male

DRUGS (4)
  1. DURAGESIC-100 [Suspect]
     Indication: PAIN MANAGEMENT
     Dosage: HALF OF 25 UG/HR
     Route: 062
  2. DURAGESIC-100 [Suspect]
     Route: 062
  3. DURAGESIC-100 [Suspect]
     Route: 062
  4. ANTIPSYCHOTIC [Concomitant]

REACTIONS (5)
  - DEMENTIA [None]
  - DEPRESSION [None]
  - DRUG ADMINISTRATION ERROR [None]
  - HALLUCINATION [None]
  - NARCOTIC INTOXICATION [None]
